FAERS Safety Report 12568206 (Version 2)
Quarter: 2016Q3

REPORT INFORMATION
  Report Type: Spontaneous
  Country: JP (occurrence: JP)
  Receive Date: 20160718
  Receipt Date: 20160830
  Transmission Date: 20161109
  Serious: Yes (Other)
  Sender: FDA-Public Use
  Company Number: JP-ALLERGAN-1663077US

PATIENT

DRUGS (1)
  1. BOTULINUM TOXIN TYPE A UNK [Suspect]
     Active Substance: BOTULINUM TOXIN TYPE A
     Indication: STRABISMUS
     Dosage: 2.5 UNITS, SINGLE
     Route: 030

REACTIONS (3)
  - Condition aggravated [Unknown]
  - Therapeutic response decreased [Unknown]
  - Corneal endotheliitis [Unknown]
